FAERS Safety Report 20972337 (Version 2)
Quarter: 2022Q3

REPORT INFORMATION
  Report Type: Report from Study
  Country: MX (occurrence: MX)
  Receive Date: 20220617
  Receipt Date: 20220712
  Transmission Date: 20221027
  Serious: Yes (Death, Hospitalization, Other)
  Sender: FDA-Public Use
  Company Number: MX-BRISTOL-MYERS SQUIBB COMPANY-2022-055720

PATIENT
  Age: 69 Year
  Sex: Male
  Weight: 74 kg

DRUGS (2)
  1. OPDIVO [Suspect]
     Active Substance: NIVOLUMAB
     Indication: Malignant melanoma
     Dosage: EVERY 21 DAYS
     Route: 042
     Dates: start: 20220407, end: 20220609
  2. YERVOY [Suspect]
     Active Substance: IPILIMUMAB
     Indication: Malignant melanoma
     Dosage: EVERY 21 DAYS
     Route: 042
     Dates: start: 20220407, end: 20220609

REACTIONS (3)
  - Death [Fatal]
  - Eye infection [Recovering/Resolving]
  - Prescribed overdose [Unknown]

NARRATIVE: CASE EVENT DATE: 20220407
